FAERS Safety Report 10454373 (Version 1)
Quarter: 2014Q3

REPORT INFORMATION
  Report Type: Spontaneous
  Country: FR (occurrence: FR)
  Receive Date: 20140915
  Receipt Date: 20140915
  Transmission Date: 20150326
  Serious: Yes (Hospitalization)
  Sender: FDA-Public Use
  Company Number: FR-PFIZER INC-2014254772

PATIENT
  Age: 41 Year
  Sex: Female

DRUGS (6)
  1. METOJECT [Suspect]
     Active Substance: METHOTREXATE SODIUM
     Dosage: 20 MG, WEEKLY
     Dates: start: 2011, end: 2014
  2. PLAQUENIL [Suspect]
     Active Substance: HYDROXYCHLOROQUINE SULFATE
     Dosage: 200 MG, 1X/DAY
     Route: 048
     Dates: start: 2010
  3. SPECIAFOLDINE [Suspect]
     Active Substance: FOLIC ACID
     Dosage: UNK
     Route: 048
  4. HYALURONATE SODIUM [Concomitant]
     Active Substance: HYALURONATE SODIUM
     Dosage: UNK
  5. INIPOMP [Suspect]
     Active Substance: PANTOPRAZOLE SODIUM
     Dosage: 40 MG, 1X/DAY
     Route: 048
  6. ZYMAD [Suspect]
     Active Substance: CHOLECALCIFEROL
     Dosage: 30 GTT, WEEKLY
     Route: 048

REACTIONS (3)
  - Dizziness [Unknown]
  - Visual impairment [Recovered/Resolved]
  - Malaise [Unknown]

NARRATIVE: CASE EVENT DATE: 201308
